FAERS Safety Report 18227038 (Version 4)
Quarter: 2020Q4

REPORT INFORMATION
  Report Type: Spontaneous
  Country: US (occurrence: US)
  Receive Date: 20200903
  Receipt Date: 20201106
  Transmission Date: 20210113
  Serious: No
  Sender: FDA-Public Use
  Company Number: US-PFIZER INC-2020337905

PATIENT
  Age: 50 Year
  Sex: Male
  Weight: 70.76 kg

DRUGS (3)
  1. CELEBREX [Suspect]
     Active Substance: CELECOXIB
     Dosage: 100 MG, THREE TIMES A DAY
     Route: 048
  2. CELEBREX [Suspect]
     Active Substance: CELECOXIB
     Dosage: 100 MG, TWICE A DAY
  3. CELEBREX [Suspect]
     Active Substance: CELECOXIB
     Indication: ARTHRITIS
     Dosage: 200 MG, DAILY, (100MG TWO A DAY BY MOUTH)
     Route: 048

REACTIONS (7)
  - Intentional product misuse [Unknown]
  - Movement disorder [Unknown]
  - Dyslexia [Unknown]
  - Insomnia [Unknown]
  - Weight decreased [Unknown]
  - Therapeutic product effect incomplete [Unknown]
  - Pain [Unknown]
